FAERS Safety Report 20033535 (Version 1)
Quarter: 2021Q4

REPORT INFORMATION
  Report Type: Spontaneous
  Country: US (occurrence: US)
  Receive Date: 20211104
  Receipt Date: 20211104
  Transmission Date: 20220303
  Serious: Yes (Life-Threatening, Other)
  Sender: FDA-Public Use
  Company Number: US-AMGEN-USASP2021171084

PATIENT

DRUGS (4)
  1. EPOETIN ALFA [Suspect]
     Active Substance: ERYTHROPOIETIN
     Indication: Anaemia
     Dosage: UNK UNK, QWK (RECOMMENDED INITIAL DOSE 40000 U)
     Route: 058
  2. REBETOL [Concomitant]
     Active Substance: RIBAVIRIN
     Indication: Anaemia
     Dosage: UNK
  3. VICTRELIS [Concomitant]
     Active Substance: BOCEPREVIR
     Indication: Anaemia
     Dosage: UNK
  4. PEGINTRON [Concomitant]
     Active Substance: PEGINTERFERON ALFA-2B
     Indication: Anaemia
     Dosage: UNK

REACTIONS (8)
  - Adverse event [Unknown]
  - Embolism [Unknown]
  - Neoplasm malignant [Unknown]
  - Influenza like illness [Unknown]
  - Fatigue [Unknown]
  - Dyspnoea [Unknown]
  - Cardiovascular disorder [Unknown]
  - Rash [Unknown]
